FAERS Safety Report 8540166 (Version 4)
Quarter: 2012Q4

REPORT INFORMATION
  Report Type: 
  Country: BR (occurrence: BR)
  Receive Date: 20120502
  Receipt Date: 20120829
  Transmission Date: 20130627
  Serious: Yes (Other)
  Sender: FDA-Public Use
  Company Number: BR-PFIZER INC-2012095726

PATIENT
  Age: 65 Year
  Sex: Female
  Weight: 53 kg

DRUGS (4)
  1. SUTENT [Suspect]
     Indication: RENAL CELL CARCINOMA
     Dosage: 50 mg, cyclic (4 by 2), once daily
     Route: 048
     Dates: start: 20120402
  2. PURAN T4 [Concomitant]
     Dosage: 75 mg, 1x/day (in the morning, fasting)
  3. MORPHINE [Concomitant]
  4. FLUDROCORTISONE [Concomitant]
     Dosage: 5 mg daily

REACTIONS (12)
  - Oral mucosal blistering [Unknown]
  - Decreased appetite [Unknown]
  - Oral pain [Unknown]
  - Abdominal pain upper [Unknown]
  - Fatigue [Unknown]
  - Weight decreased [Not Recovered/Not Resolved]
  - Dysstasia [Not Recovered/Not Resolved]
  - Diarrhoea [Unknown]
  - Nausea [Unknown]
  - Oedema peripheral [Not Recovered/Not Resolved]
  - Asthenia [Unknown]
  - Back pain [Not Recovered/Not Resolved]
